FAERS Safety Report 6243205-X (Version None)
Quarter: 2009Q2

REPORT INFORMATION
  Report Type: 
  Country: None (occurrence: None)
  Receive Date: 20090624
  Receipt Date: 20090613
  Transmission Date: 20091009
  Serious: Yes (Other)
  Sender: FDA-Public Use
  Company Number: US-JNJFOC-20090605078

PATIENT
  Sex: Male

DRUGS (1)
  1. REMICADE [Suspect]
     Indication: CROHN'S DISEASE
     Dosage: TREATED FOR OVER 6 YEARS
     Route: 042

REACTIONS (3)
  - CROHN'S DISEASE [None]
  - NEPHROLITHIASIS [None]
  - SKIN CANCER [None]
